FAERS Safety Report 11447215 (Version 1)
Quarter: 2015Q3

REPORT INFORMATION
  Report Type: Spontaneous
  Country: US (occurrence: US)
  Receive Date: 20150831
  Receipt Date: 20150831
  Transmission Date: 20151125
  Serious: No
  Sender: FDA-Public Use
  Company Number: US-ELI_LILLY_AND_COMPANY-US200902007557

PATIENT
  Age: 44 Year
  Sex: Female

DRUGS (5)
  1. CYMBALTA [Suspect]
     Active Substance: DULOXETINE HYDROCHLORIDE
     Dosage: 60 MG, 30 MG, 30 MG, 60 MG, 30 MG, 30 MG FOR ONE WEEK
     Dates: start: 20090212, end: 20090218
  2. CYMBALTA [Suspect]
     Active Substance: DULOXETINE HYDROCHLORIDE
     Indication: ANXIETY
     Dosage: 60 MG, DAILY (1/D)
     Dates: start: 20080826
  3. CYMBALTA [Suspect]
     Active Substance: DULOXETINE HYDROCHLORIDE
     Dosage: 60 MG, 30 MG, 30 MG, 30 MG, 60 MG, 30 MG, 30 MG FOR ONE WEEK
     Dates: start: 20090219
  4. CYMBALTA [Suspect]
     Active Substance: DULOXETINE HYDROCHLORIDE
     Dosage: 60 MG, THEN 30 MG, THEN 60MG ETC FOR ONE WEEK
     Dates: start: 20090205, end: 20090211
  5. XANAX [Concomitant]
     Active Substance: ALPRAZOLAM
     Dosage: NOT TAKEN EVERY DAY

REACTIONS (3)
  - Vomiting [Not Recovered/Not Resolved]
  - Feeling abnormal [Not Recovered/Not Resolved]
  - Nausea [Not Recovered/Not Resolved]

NARRATIVE: CASE EVENT DATE: 20090205
